FAERS Safety Report 15543078 (Version 6)
Quarter: 2020Q3

REPORT INFORMATION
  Report Type: Spontaneous
  Country: CA (occurrence: CA)
  Receive Date: 20181023
  Receipt Date: 20200727
  Transmission Date: 20201102
  Serious: Yes (Hospitalization, Other)
  Sender: FDA-Public Use
  Company Number: CA-PFIZER INC-2018432053

PATIENT
  Age: 80 Year
  Sex: Male

DRUGS (18)
  1. PANTOPRAZOLE [Suspect]
     Active Substance: PANTOPRAZOLE
     Dosage: 40 MILLIGRAM, QD
     Route: 048
  2. SANDOSTATIN [Suspect]
     Active Substance: OCTREOTIDE ACETATE
     Dosage: 30 MG, MONTHLY
     Route: 030
  3. CLINDAMYCIN. [Concomitant]
     Active Substance: CLINDAMYCIN
     Dosage: 300 MG, UNK
     Route: 065
     Dates: start: 20160509
  4. FERROUS CARBONATE W/FOLIC ACID [Concomitant]
     Dosage: 250 UG, 1X/DAY
     Route: 048
  5. GRAVOL [Concomitant]
     Active Substance: DIMENHYDRINATE
     Dosage: 50 MG, CYCLIC (Q6HR)
     Route: 048
  6. VITAMIN B12 [Concomitant]
     Active Substance: CYANOCOBALAMIN
     Dosage: UNK
     Route: 048
  7. CETOMACROGOL 1000 W/CETOSTEARYL ALCOHOL/CHLOR [Concomitant]
     Dosage: UNK, 2X/DAY
     Route: 065
  8. CETOMACROGOL 1000 W/CETOSTEARYL ALCOHOL/CHLOR [Concomitant]
     Dosage: UNK
     Route: 065
  9. GRAVOL [Concomitant]
     Active Substance: DIMENHYDRINATE
     Dosage: UNK, CYCLIC (Q6HR)
     Route: 048
  10. OLMETEC PLUS [Concomitant]
     Active Substance: HYDROCHLOROTHIAZIDE\OLMESARTAN MEDOXOMIL
     Dosage: 40/12.5 MG, 1X/DAY
     Route: 065
     Dates: start: 201609
  11. OLMETEC PLUS [Concomitant]
     Active Substance: HYDROCHLOROTHIAZIDE\OLMESARTAN MEDOXOMIL
     Dosage: UNK, 1X/DAY
     Route: 065
  12. CETOMACROGOL 1000 W/CETOSTEARYL ALCOHOL/CHLOR [Concomitant]
     Dosage: UNK, 1X/DAY
     Route: 065
  13. SANDOSTATIN [Suspect]
     Active Substance: OCTREOTIDE ACETATE
     Indication: CARCINOID TUMOUR
     Dosage: 30 MG, MONTHLY
     Route: 030
     Dates: start: 20160219, end: 20170413
  14. AFINITOR [Suspect]
     Active Substance: EVEROLIMUS
     Dosage: UNK
     Route: 065
  15. SANDOSTATIN [Suspect]
     Active Substance: OCTREOTIDE ACETATE
     Indication: CARCINOID TUMOUR
     Dosage: 75 UG, 2X/DAY
     Route: 058
     Dates: start: 20150608
  16. GRAVOL [Concomitant]
     Active Substance: DIMENHYDRINATE
     Dosage: UNK
     Route: 048
  17. FERROUS CARBONATE [Concomitant]
     Active Substance: FERROUS CARBONATE
     Dosage: UNK
     Route: 048
  18. FOLIC ACID. [Concomitant]
     Active Substance: FOLIC ACID
     Dosage: UNK
     Route: 048

REACTIONS (18)
  - Pneumonia [Recovered/Resolved]
  - Injection site pain [Not Recovered/Not Resolved]
  - Malaise [Not Recovered/Not Resolved]
  - Infection [Not Recovered/Not Resolved]
  - Liver disorder [Not Recovered/Not Resolved]
  - Erythema [Not Recovered/Not Resolved]
  - Abdominal pain [Recovering/Resolving]
  - Intracranial mass [Not Recovered/Not Resolved]
  - Nausea [Not Recovered/Not Resolved]
  - Vomiting [Not Recovered/Not Resolved]
  - Abnormal faeces [Not Recovered/Not Resolved]
  - Body temperature decreased [Not Recovered/Not Resolved]
  - Asthenia [Not Recovered/Not Resolved]
  - Blood pressure systolic increased [Not Recovered/Not Resolved]
  - Diarrhoea [Not Recovered/Not Resolved]
  - Hypersensitivity [Not Recovered/Not Resolved]
  - Fall [Not Recovered/Not Resolved]
  - Pain [Recovered/Resolved]

NARRATIVE: CASE EVENT DATE: 20150713
